FAERS Safety Report 7725756-1 (Version None)
Quarter: 2011Q3

REPORT INFORMATION
  Report Type: 
  Country: None (occurrence: None)
  Receive Date: 20110831
  Receipt Date: 20110817
  Transmission Date: 20111222
  Serious: Yes (Hospitalization)
  Sender: FDA-Public Use
  Company Number: ALK_01779_2011

PATIENT
  Sex: Male
  Weight: 170 kg

DRUGS (5)
  1. CAMPRAL [Concomitant]
  2. TRAZODONE HCL [Concomitant]
  3. ANTABUSE [Concomitant]
  4. VIVITROL [Suspect]
     Indication: ALCOHOLISM
     Dosage: 380 MG 1X/4 WEEKS; INTRAMUSCULAR
     Route: 030
     Dates: start: 20110325, end: 20110606
  5. HYDROCHLOROTHIAZIDE [Concomitant]

REACTIONS (7)
  - NAUSEA [None]
  - ABDOMINAL PAIN [None]
  - INJECTION SITE PAIN [None]
  - INJECTION SITE NODULE [None]
  - DRUG HYPERSENSITIVITY [None]
  - INJECTION SITE ABSCESS [None]
  - STAPHYLOCOCCAL ABSCESS [None]
